FAERS Safety Report 15946960 (Version 2)
Quarter: 2019Q1

REPORT INFORMATION
  Report Type: Spontaneous
  Country: US (occurrence: US)
  Receive Date: 20190211
  Receipt Date: 20190213
  Transmission Date: 20190417
  Serious: No
  Sender: FDA-Public Use
  Company Number: US-PFIZER INC-2019061102

PATIENT
  Age: 3 Year
  Sex: Male

DRUGS (1)
  1. GENOTROPIN [Suspect]
     Active Substance: SOMATROPIN
     Indication: SEPTO-OPTIC DYSPLASIA
     Dosage: 0.5 MG, DAILY

REACTIONS (7)
  - Blood urea nitrogen/creatinine ratio increased [Unknown]
  - Globulins decreased [Unknown]
  - Blood urea increased [Unknown]
  - Blood glucose decreased [Unknown]
  - Insulin-like growth factor decreased [Unknown]
  - Product use in unapproved indication [Unknown]
  - Thyroxine free decreased [Unknown]

NARRATIVE: CASE EVENT DATE: 20180914
